FAERS Safety Report 7821372-1 (Version None)
Quarter: 2011Q4

REPORT INFORMATION
  Report Type: 
  Country: None (occurrence: None)
  Receive Date: 20111018
  Receipt Date: 20111011
  Transmission Date: 20120403
  Serious: Yes (Death, Other)
  Sender: FDA-Public Use
  Company Number: NL-CELGENEUS-114-50794-11101192

PATIENT

DRUGS (3)
  1. VIDAZA [Suspect]
  2. VIDAZA [Suspect]
     Route: 058
  3. VIDAZA [Suspect]

REACTIONS (13)
  - NAUSEA [None]
  - REFRACTORY CYTOPENIA WITH MULTILINEAGE DYSPLASIA [None]
  - DEATH [None]
  - MALAISE [None]
  - ACUTE MYELOID LEUKAEMIA [None]
  - CEREBROVASCULAR ACCIDENT [None]
  - MYELODYSPLASTIC SYNDROME [None]
  - REFRACTORY ANAEMIA WITH RINGED SIDEROBLASTS [None]
  - CHRONIC MYELOID LEUKAEMIA [None]
  - NEOPLASM PROGRESSION [None]
  - REFRACTORY ANAEMIA WITH AN EXCESS OF BLASTS [None]
  - STEM CELL TRANSPLANT [None]
  - GASTROINTESTINAL HAEMORRHAGE [None]
